FAERS Safety Report 16881451 (Version 1)
Quarter: 2019Q4

REPORT INFORMATION
  Report Type: Spontaneous
  Country: US (occurrence: US)
  Receive Date: 20191003
  Receipt Date: 20191003
  Transmission Date: 20200122
  Serious: Yes (Hospitalization)
  Sender: FDA-Public Use
  Company Number: None

PATIENT
  Age: 73 Year
  Sex: Female
  Weight: 91.35 kg

DRUGS (10)
  1. MAGNESIUM [Concomitant]
     Active Substance: MAGNESIUM
     Dates: start: 20190624, end: 20190624
  2. GABAPENTIN. [Concomitant]
     Active Substance: GABAPENTIN
     Dates: start: 20190624, end: 20190624
  3. SUCCINYLCHOLINE [Concomitant]
     Active Substance: SUCCINYLCHOLINE
     Dates: start: 20190624, end: 20190624
  4. KETAMINE [Concomitant]
     Active Substance: KETAMINE
     Dates: start: 20190624, end: 20190624
  5. ROCURONIUM [Concomitant]
     Active Substance: ROCURONIUM BROMIDE
     Dates: start: 20190624, end: 20190624
  6. CELECOXIB. [Concomitant]
     Active Substance: CELECOXIB
     Dates: start: 20190624, end: 20190624
  7. LIDOCAINE. [Suspect]
     Active Substance: LIDOCAINE
     Indication: POSTOPERATIVE ANALGESIA
     Route: 041
     Dates: start: 20190624, end: 20190625
  8. ACETAMINOPHEN. [Concomitant]
     Active Substance: ACETAMINOPHEN
     Dates: start: 20190624, end: 20190624
  9. MIDAZOLAM [Concomitant]
     Active Substance: MIDAZOLAM HYDROCHLORIDE
     Dates: start: 20190624, end: 20190624
  10. PROPOFOL. [Concomitant]
     Active Substance: PROPOFOL
     Dates: start: 20190624, end: 20190624

REACTIONS (2)
  - Vision blurred [None]
  - Diplopia [None]

NARRATIVE: CASE EVENT DATE: 20190625
